FAERS Safety Report 25226363 (Version 2)
Quarter: 2025Q2

REPORT INFORMATION
  Report Type: Spontaneous
  Country: JP (occurrence: JP)
  Receive Date: 20250422
  Receipt Date: 20250610
  Transmission Date: 20250717
  Serious: Yes (Other)
  Sender: SANOFI AVENTIS
  Company Number: JP-DialogSolutions-SAAVPROD-PI758866-C1

PATIENT
  Age: 1 Year
  Sex: Female

DRUGS (5)
  1. CEREZYME [Suspect]
     Active Substance: IMIGLUCERASE
     Indication: Gaucher^s disease type II
     Dosage: UNK UNK, QOW
     Route: 041
     Dates: start: 2021, end: 2021
  2. CEREZYME [Suspect]
     Active Substance: IMIGLUCERASE
     Dosage: 60 U/KG, QOW
     Route: 041
     Dates: start: 2021, end: 2021
  3. CEREZYME [Suspect]
     Active Substance: IMIGLUCERASE
     Dosage: 120 U/KG, QOW
     Route: 041
     Dates: start: 2021
  4. PLATELETS [Concomitant]
     Active Substance: HUMAN PLATELET, ALLOGENIC
     Indication: Thrombocytopenia
     Route: 065
     Dates: start: 2021
  5. PLATELETS [Concomitant]
     Active Substance: HUMAN PLATELET, ALLOGENIC
     Indication: Hepatosplenomegaly

REACTIONS (1)
  - Drug-induced liver injury [Recovering/Resolving]

NARRATIVE: CASE EVENT DATE: 20210101
